FAERS Safety Report 16318725 (Version 2)
Quarter: 2019Q2

REPORT INFORMATION
  Report Type: Report from Study
  Country: US (occurrence: US)
  Receive Date: 20190516
  Receipt Date: 20190531
  Transmission Date: 20190711
  Serious: Yes (Hospitalization)
  Sender: FDA-Public Use
  Company Number: US-ROCHE-2314734

PATIENT
  Age: 74 Year
  Sex: Female
  Weight: 59.02 kg

DRUGS (6)
  1. VESICARE [Concomitant]
     Active Substance: SOLIFENACIN SUCCINATE
     Dosage: ONGOING:YES
     Route: 065
  2. OCREVUS [Suspect]
     Active Substance: OCRELIZUMAB
     Indication: PRIMARY PROGRESSIVE MULTIPLE SCLEROSIS
     Dosage: EVERY 6 MONTHS ;ONGOING: YES
     Route: 065
     Dates: start: 201804
  3. MELATONIN [Concomitant]
     Active Substance: MELATONIN
     Dosage: ONGOING:YES
     Route: 065
  4. FENTANYL TRANSDERMAL SYSTEM [Concomitant]
     Active Substance: FENTANYL
     Indication: PAIN
     Dosage: EVERY 3 DAYS ;ONGOING: YES
     Route: 065
  5. ALEVE [Concomitant]
     Active Substance: NAPROXEN SODIUM
     Dosage: ONGOING:YES
     Route: 065
  6. CORTISONE [Concomitant]
     Active Substance: CORTISONE\HYDROCORTISONE

REACTIONS (6)
  - Dry mouth [Not Recovered/Not Resolved]
  - Urinary tract infection [Recovered/Resolved]
  - Lip dry [Not Recovered/Not Resolved]
  - Sepsis [Recovered/Resolved]
  - Decubitus ulcer [Not Recovered/Not Resolved]
  - Hallucination [Recovered/Resolved]

NARRATIVE: CASE EVENT DATE: 201812
